FAERS Safety Report 6342869-X (Version None)
Quarter: 2009Q3

REPORT INFORMATION
  Report Type: 
  Country: None (occurrence: None)
  Receive Date: 20090908
  Receipt Date: 20090824
  Transmission Date: 20100115
  Serious: Yes (Hospitalization)
  Sender: FDA-Public Use
  Company Number: US-ROCHE-524453

PATIENT
  Sex: Female

DRUGS (5)
  1. PEG-INTERFERON A-2A (RO 25-8310) [Suspect]
     Indication: HEPATITIS C
     Dosage: FORM: PRE-FILLED SYRINGE
     Route: 065
     Dates: start: 20070820, end: 20070925
  2. PEG-INTERFERON A-2A (RO 25-8310) [Suspect]
     Route: 065
     Dates: start: 20071008, end: 20080710
  3. RIBAVIRIN [Suspect]
     Indication: HEPATITIS C
     Route: 065
     Dates: start: 20070820, end: 20070925
  4. RIBAVIRIN [Suspect]
     Route: 065
     Dates: start: 20071008, end: 20080710
  5. PAXIL [Concomitant]
     Indication: DRUG USE FOR UNKNOWN INDICATION

REACTIONS (10)
  - ASTHENIA [None]
  - CONFUSIONAL STATE [None]
  - FULL BLOOD COUNT ABNORMAL [None]
  - HYPOTENSION [None]
  - INSOMNIA [None]
  - PLATELET COUNT DECREASED [None]
  - SUICIDAL IDEATION [None]
  - TREATMENT FAILURE [None]
  - VISUAL IMPAIRMENT [None]
  - WEIGHT DECREASED [None]
